FAERS Safety Report 17040366 (Version 1)
Quarter: 2019Q4

REPORT INFORMATION
  Report Type: Spontaneous
  Country: US (occurrence: US)
  Receive Date: 20191117
  Receipt Date: 20191117
  Transmission Date: 20200122
  Serious: No
  Sender: FDA-Public Use
  Company Number: US-TORRENT-00009323

PATIENT
  Sex: Male
  Weight: 81 kg

DRUGS (2)
  1. PROPRANOLOL [Concomitant]
     Active Substance: PROPRANOLOL HYDROCHLORIDE
     Indication: HYPERTENSION
     Dosage: IN THE MORNING
  2. LOSARTAN. [Suspect]
     Active Substance: LOSARTAN
     Indication: HYPERTENSION
     Dosage: FROM LONG TIME IN EVENING

REACTIONS (2)
  - Pruritus [Not Recovered/Not Resolved]
  - Sticky skin [Unknown]

NARRATIVE: CASE EVENT DATE: 201909
